FAERS Safety Report 20574835 (Version 4)
Quarter: 2022Q2

REPORT INFORMATION
  Report Type: Report from Study
  Country: JP (occurrence: JP)
  Receive Date: 20220310
  Receipt Date: 20220627
  Transmission Date: 20220720
  Serious: Yes (Other)
  Sender: FDA-Public Use
  Company Number: JP-TAKEDA-2021TJP105626

PATIENT
  Age: 48 Year
  Sex: Female
  Weight: 69.8 kg

DRUGS (15)
  1. VORTIOXETINE [Suspect]
     Active Substance: VORTIOXETINE
     Indication: Major depression
     Dosage: 10 MILLIGRAM, QD
     Route: 065
     Dates: start: 20210805, end: 20210819
  2. VORTIOXETINE [Suspect]
     Active Substance: VORTIOXETINE
     Dosage: 20 MILLIGRAM, QD
     Route: 065
     Dates: start: 20210820, end: 20220120
  3. TOPIRAMATE [Concomitant]
     Active Substance: TOPIRAMATE
     Indication: Major depression
     Dosage: 25 MILLIGRAM, QD
     Route: 048
     Dates: start: 20180404
  4. ZOLPIDEM TARTRATE [Concomitant]
     Active Substance: ZOLPIDEM TARTRATE
     Dosage: 5 MILLIGRAM, QD
     Route: 048
     Dates: start: 20150319
  5. BETAHISTINE MESILATE [Concomitant]
     Active Substance: BETAHISTINE MESILATE
     Indication: Dizziness
     Dosage: 12 MILLIGRAM, QD
     Route: 048
     Dates: start: 20150617
  6. PAXIL [Concomitant]
     Active Substance: PAROXETINE HYDROCHLORIDE
     Indication: Major depression
     Dosage: 25 MILLIGRAM, QD
     Route: 048
     Dates: start: 20180124, end: 20210804
  7. PAXIL [Concomitant]
     Active Substance: PAROXETINE HYDROCHLORIDE
     Dosage: 12.5 MILLIGRAM, QD
     Route: 048
     Dates: start: 20210805, end: 20210818
  8. LEVOFLOXACIN [Concomitant]
     Active Substance: LEVOFLOXACIN
     Indication: Nasopharyngitis
     Dosage: 500 MILLIGRAM, QD
     Route: 048
     Dates: start: 20210805, end: 20210811
  9. HUSCODE [Concomitant]
     Active Substance: CHLORPHENIRAMINE MALEATE\DIHYDROCODEINE PHOSPHATE\METHYLEPHEDRINE HYDROCHLORIDE, DL-
     Indication: Nasopharyngitis
     Dosage: 1 DOSAGE FORM, TID
     Route: 048
     Dates: start: 20210805, end: 20210811
  10. HUSCODE [Concomitant]
     Active Substance: CHLORPHENIRAMINE MALEATE\DIHYDROCODEINE PHOSPHATE\METHYLEPHEDRINE HYDROCHLORIDE, DL-
     Dosage: 1 MILLIGRAM, TID
     Route: 048
     Dates: start: 20210819, end: 20210901
  11. ACETAMINOPHEN\CAFFEINE\PROMETHAZINE\SALICYLAMIDE [Concomitant]
     Active Substance: ACETAMINOPHEN\CAFFEINE\PROMETHAZINE\SALICYLAMIDE
     Indication: Nasopharyngitis
     Dosage: 2 DOSAGE FORM, TID
     Route: 048
     Dates: start: 20210805, end: 20210811
  12. BISOLVON [Concomitant]
     Active Substance: BROMHEXINE HYDROCHLORIDE
     Indication: Nasopharyngitis
     Dosage: 4 MILLIGRAM, TID
     Route: 048
     Dates: start: 20210805, end: 20210811
  13. BISOLVON [Concomitant]
     Active Substance: BROMHEXINE HYDROCHLORIDE
     Dosage: 4 MILLIGRAM, TID
     Route: 048
     Dates: start: 20210819, end: 20210901
  14. AMBROXOL HYDROCHLORIDE [Concomitant]
     Active Substance: AMBROXOL HYDROCHLORIDE
     Indication: Nasopharyngitis
     Dosage: 15 MILLIGRAM, TID
     Route: 048
     Dates: start: 20210805, end: 20210811
  15. HERBALS [Concomitant]
     Active Substance: HERBALS
     Indication: Constipation
     Dosage: 7.5 GRAM, TID
     Route: 048
     Dates: start: 20210318

REACTIONS (2)
  - Major depression [Recovered/Resolved]
  - Cough variant asthma [Recovered/Resolved]

NARRATIVE: CASE EVENT DATE: 20210902
